FAERS Safety Report 14718458 (Version 3)
Quarter: 2020Q1

REPORT INFORMATION
  Report Type: Report from Study
  Country: US (occurrence: US)
  Receive Date: 20180404
  Receipt Date: 20200107
  Transmission Date: 20200409
  Serious: No
  Sender: FDA-Public Use
  Company Number: US-SA-2018SA081555

PATIENT
  Age: 81 Year
  Sex: Female
  Weight: 72.5 kg

DRUGS (18)
  1. DUPILUMAB [Suspect]
     Active Substance: DUPILUMAB
     Indication: RASH
     Dosage: 300 MG, QOW
     Route: 058
     Dates: start: 201803, end: 201903
  2. FLUOCINONIDE. [Concomitant]
     Active Substance: FLUOCINONIDE
     Indication: RASH
     Dosage: UNK UNK,BID
     Route: 065
     Dates: start: 2015
  3. ELIDEL [Concomitant]
     Active Substance: PIMECROLIMUS
     Indication: PRURITUS
  4. HYDROXYZINE HYDROCHLORIDE. [Concomitant]
     Active Substance: HYDROXYZINE HYDROCHLORIDE
     Indication: PRURITUS
  5. DUPILUMAB [Suspect]
     Active Substance: DUPILUMAB
     Indication: DERMATITIS ATOPIC
     Dosage: 600 MG, 1X
     Route: 058
     Dates: start: 20180309, end: 20180309
  6. DUPILUMAB [Suspect]
     Active Substance: DUPILUMAB
     Indication: PRURITUS
  7. FLUTICASONE. [Concomitant]
     Active Substance: FLUTICASONE
     Indication: SWELLING
  8. FLUTICASONE. [Concomitant]
     Active Substance: FLUTICASONE
     Indication: PRURITUS
  9. ELIDEL [Concomitant]
     Active Substance: PIMECROLIMUS
     Indication: RASH
     Dosage: UNK UNK,BID
     Route: 065
     Dates: start: 2017, end: 2018
  10. HYDROXYZINE HYDROCHLORIDE. [Concomitant]
     Active Substance: HYDROXYZINE HYDROCHLORIDE
     Indication: RASH
     Dosage: UNK UNK,HS
     Route: 065
     Dates: start: 2016
  11. CALCIUM [Concomitant]
     Active Substance: CALCIUM
  12. ELIDEL [Concomitant]
     Active Substance: PIMECROLIMUS
     Indication: SWELLING
  13. ERGOCALCIFEROL. [Concomitant]
     Active Substance: ERGOCALCIFEROL
  14. FLUOCINONIDE. [Concomitant]
     Active Substance: FLUOCINONIDE
     Indication: SWELLING
  15. FLUTICASONE. [Concomitant]
     Active Substance: FLUTICASONE
     Indication: RASH
     Dosage: UNK UNK,BID
     Route: 065
     Dates: start: 2015
  16. HYDROXYZINE HYDROCHLORIDE. [Concomitant]
     Active Substance: HYDROXYZINE HYDROCHLORIDE
     Indication: SWELLING
  17. DUPILUMAB [Suspect]
     Active Substance: DUPILUMAB
     Indication: SWELLING
  18. FLUOCINONIDE. [Concomitant]
     Active Substance: FLUOCINONIDE
     Indication: PRURITUS

REACTIONS (5)
  - Injection site pain [Recovered/Resolved]
  - Drug ineffective [Recovering/Resolving]
  - Dermatitis atopic [Unknown]
  - Rash [Recovering/Resolving]
  - Insomnia [Recovered/Resolved]

NARRATIVE: CASE EVENT DATE: 2018
